FAERS Safety Report 4604515-2 (Version None)
Quarter: 2005Q1

REPORT INFORMATION
  Report Type: 
  Country: None (occurrence: None)
  Receive Date: 20050217
  Receipt Date: 20041122
  Transmission Date: 20050727
  Serious: No
  Sender: FDA-Public Use
  Company Number: S04-USA-07542-01

PATIENT
  Age: 84 Year
  Sex: Female

DRUGS (6)
  1. NAMENDA [Suspect]
     Indication: DEMENTIA ALZHEIMER'S TYPE
     Dosage: 5 MG QD PO
     Route: 048
     Dates: start: 20041116
  2. ARICEPT [Concomitant]
  3. RESTORIL [Concomitant]
  4. LOTREL [Concomitant]
  5. ULTRAM [Concomitant]
  6. LORTAB [Concomitant]

REACTIONS (1)
  - HEADACHE [None]
